FAERS Safety Report 18635905 (Version 1)
Quarter: 2020Q4

REPORT INFORMATION
  Report Type: Report from Study
  Country: ES (occurrence: ES)
  Receive Date: 20201218
  Receipt Date: 20201218
  Transmission Date: 20210114
  Serious: Yes (Hospitalization)
  Sender: FDA-Public Use
  Company Number: ES-TAKEDA-2020TUS057395

PATIENT
  Sex: Male

DRUGS (1)
  1. IDURSULFASE [Suspect]
     Active Substance: IDURSULFASE
     Indication: MUCOPOLYSACCHARIDOSIS II
     Dosage: 8.5 MILLIGRAM, 1/WEEK
     Route: 042
     Dates: start: 20200302

REACTIONS (1)
  - Catheter placement [Unknown]

NARRATIVE: CASE EVENT DATE: 20201127
